FAERS Safety Report 10708632 (Version 1)
Quarter: 2015Q1

REPORT INFORMATION
  Report Type: Spontaneous
  Country: US (occurrence: US)
  Receive Date: 20150113
  Receipt Date: 20150113
  Transmission Date: 20150721
  Serious: Yes (Death, Other)
  Sender: FDA-Public Use
  Company Number: US-GLAXOSMITHKLINE-US2015GSK002290

PATIENT
  Age: 48 Year
  Sex: Female

DRUGS (3)
  1. ZOLPIDEM [Suspect]
     Active Substance: ZOLPIDEM\ZOLPIDEM TARTRATE
     Route: 048
  2. BUPROPION [Suspect]
     Active Substance: BUPROPION
     Route: 048
  3. OXYCODONE [Suspect]
     Active Substance: OXYCODONE
     Route: 048

REACTIONS (2)
  - Death [Fatal]
  - Drug abuse [Fatal]
